FAERS Safety Report 25964390 (Version 1)
Quarter: 2025Q4

REPORT INFORMATION
  Report Type: Spontaneous
  Country: TW (occurrence: TW)
  Receive Date: 20251027
  Receipt Date: 20251027
  Transmission Date: 20260118
  Serious: Yes (Hospitalization)
  Sender: SANDOZ
  Company Number: None

PATIENT
  Age: 28 Year
  Sex: Male
  Weight: 78 kg

DRUGS (4)
  1. AMOXICILLIN\CLAVULANATE POTASSIUM [Suspect]
     Active Substance: AMOXICILLIN\CLAVULANATE POTASSIUM
     Indication: Postoperative wound infection
     Dosage: 1.0[TBS_US] , BID, CONTENT 875.0 MG/149.0MG
     Route: 048
  2. CELEBREX [Concomitant]
     Active Substance: CELECOXIB
     Indication: Pain
     Dosage: 200 MG, BID
     Route: 048
  3. Fucole Paran [Concomitant]
     Indication: Pain
     Dosage: 1.0[TBS_US], QID, CONTENT 500 MG
     Route: 048
  4. Voker [Concomitant]
     Indication: Stress ulcer
     Dosage: 20 MG, BID
     Route: 048

REACTIONS (3)
  - Pyrexia [Recovered/Resolved]
  - Rash [Recovered/Resolved]
  - Stevens-Johnson syndrome [Recovered/Resolved]
